FAERS Safety Report 9943166 (Version 3)
Quarter: 2014Q1

REPORT INFORMATION
  Report Type: Spontaneous
  Country: US (occurrence: US)
  Receive Date: 20140303
  Receipt Date: 20140312
  Transmission Date: 20141002
  Serious: Yes (Hospitalization)
  Sender: FDA-Public Use
  Company Number: US-GLAXOSMITHKLINE-A1063074A

PATIENT
  Age: 72 Year
  Sex: Male

DRUGS (1)
  1. VOTRIENT [Suspect]
     Indication: RENAL CANCER
     Dosage: 400MG PER DAY
     Route: 065
     Dates: start: 20131119

REACTIONS (10)
  - Diarrhoea haemorrhagic [Not Recovered/Not Resolved]
  - Rectal haemorrhage [Not Recovered/Not Resolved]
  - Abnormal faeces [Not Recovered/Not Resolved]
  - Faeces hard [Unknown]
  - Faeces discoloured [Unknown]
  - Haematochezia [Recovered/Resolved]
  - Gastrointestinal ulcer [Unknown]
  - Dyspepsia [Unknown]
  - Decreased appetite [Unknown]
  - Weight decreased [Unknown]
